FAERS Safety Report 6901999-1 (Version None)
Quarter: 2010Q3

REPORT INFORMATION
  Report Type: 
  Country: None (occurrence: None)
  Receive Date: 20100802
  Receipt Date: 20100802
  Transmission Date: 20110219
  Serious: Yes (Hospitalization)
  Sender: FDA-Public Use
  Company Number: None

PATIENT
  Sex: Female
  Weight: 68 kg

DRUGS (2)
  1. CISPLATIN [Suspect]
     Dosage: 140 MG
  2. GEMCITABINE HCL [Suspect]
     Dosage: 1780 MG

REACTIONS (6)
  - APHASIA [None]
  - ASTHENIA [None]
  - CONFUSIONAL STATE [None]
  - HYPONATRAEMIA [None]
  - HYPOVOLAEMIA [None]
  - POLYDIPSIA [None]
